FAERS Safety Report 8381444-2 (Version None)
Quarter: 2012Q2

REPORT INFORMATION
  Report Type: 
  Country: None (occurrence: None)
  Receive Date: 20120523
  Receipt Date: 20120118
  Transmission Date: 20120825
  Serious: Yes (Hospitalization)
  Sender: FDA-Public Use
  Company Number: US-ROCHE-1031857

PATIENT
  Sex: Female
  Weight: 74.8 kg

DRUGS (11)
  1. XELODA [Suspect]
     Route: 048
     Dates: start: 20110825
  2. KEPPRA [Concomitant]
     Dates: start: 20101127
  3. IBUPROFEN (ADVIL) [Concomitant]
     Dates: start: 20110701
  4. METOCLOPRAMIDE [Concomitant]
     Dates: start: 20110118
  5. FERROUS SULFATE TAB [Concomitant]
     Dates: start: 20111126
  6. XELODA [Suspect]
     Indication: PANCREATIC CARCINOMA
     Route: 048
     Dates: start: 20110801, end: 20110810
  7. COUMADIN [Concomitant]
     Dates: start: 20110302
  8. PROMETHAZINE [Concomitant]
     Dates: start: 20101102
  9. ZOFRAN [Concomitant]
     Dates: start: 20110118
  10. RUXOLITINIB PHOSPHATE [Suspect]
     Indication: PANCREATIC CARCINOMA
     Route: 048
     Dates: start: 20110801, end: 20110810
  11. TRAMADOL HYDROCHLORIDE [Concomitant]
     Dates: start: 20110131

REACTIONS (3)
  - NAUSEA [None]
  - OBSTRUCTION GASTRIC [None]
  - VOMITING [None]
